FAERS Safety Report 14315818 (Version 9)
Quarter: 2018Q4

REPORT INFORMATION
  Report Type: Spontaneous
  Country: DE (occurrence: DE)
  Receive Date: 20171221
  Receipt Date: 20181002
  Transmission Date: 20190204
  Serious: Yes (Death, Hospitalization, Other)
  Sender: FDA-Public Use
  Company Number: DE-MYLANLABS-2017M1080008

PATIENT
  Age: 78 Year
  Sex: Male

DRUGS (60)
  1. PAROXETINE. [Suspect]
     Active Substance: PAROXETINE
     Indication: AGGRESSION
  2. PAROXETINE. [Suspect]
     Active Substance: PAROXETINE
     Indication: AGITATION
  3. FLUPENTHIXOL [Suspect]
     Active Substance: FLUPENTIXOL
     Indication: AGITATION
  4. DEXTROMETHORPHAN HYDROBROMIDE. [Suspect]
     Active Substance: DEXTROMETHORPHAN HYDROBROMIDE
     Indication: AGGRESSION
     Dosage: 24 MG, BID
     Dates: start: 2017
  5. RIVASTIGMINE. [Concomitant]
     Active Substance: RIVASTIGMINE
     Indication: DEMENTIA WITH LEWY BODIES
  6. DIAZEPAM. [Concomitant]
     Active Substance: DIAZEPAM
     Indication: DELIRIUM
  7. MIRTAZAPINE. [Concomitant]
     Active Substance: MIRTAZAPINE
     Indication: AGGRESSION
     Dosage: UNK
  8. MIRTAZAPINE. [Concomitant]
     Active Substance: MIRTAZAPINE
     Indication: DELIRIUM
  9. FORMOTEROL [Suspect]
     Active Substance: FORMOTEROL
     Indication: PNEUMONIA
     Dosage: UNK UNK, QD
     Dates: start: 201601
  10. FLUPENTHIXOL [Suspect]
     Active Substance: FLUPENTIXOL
     Indication: AGGRESSION
     Dosage: 20 MG, QD
     Route: 048
  11. FLUPENTHIXOL [Suspect]
     Active Substance: FLUPENTIXOL
     Indication: PNEUMONIA
  12. FLUPENTHIXOL [Suspect]
     Active Substance: FLUPENTIXOL
     Indication: HANGOVER
  13. DEXTROMETHORPHAN HYDROBROMIDE. [Suspect]
     Active Substance: DEXTROMETHORPHAN HYDROBROMIDE
     Dosage: DOSE INCREASED, TWO DIVIDED DOSES
     Route: 065
  14. RIVASTIGMINE. [Concomitant]
     Active Substance: RIVASTIGMINE
     Indication: AGITATION
  15. DONEPEZIL. [Concomitant]
     Active Substance: DONEPEZIL
     Indication: DELIRIUM
  16. CLOZAPINE. [Concomitant]
     Active Substance: CLOZAPINE
     Indication: DEMENTIA WITH LEWY BODIES
     Dosage: UNK
  17. PIPAMPERONE [Concomitant]
     Active Substance: PIPAMPERONE
     Indication: DEMENTIA WITH LEWY BODIES
     Dosage: UNK
  18. ARIPIPRAZOLE. [Concomitant]
     Active Substance: ARIPIPRAZOLE
     Indication: DEMENTIA WITH LEWY BODIES
     Dosage: UNK
  19. BENPERIDOL [Concomitant]
     Active Substance: BENPERIDOL
     Indication: DEMENTIA WITH LEWY BODIES
     Dosage: UNK
  20. LORAZEPAM. [Suspect]
     Active Substance: LORAZEPAM
     Indication: DELIRIUM
     Dosage: UNK, HIGH DOSE
     Dates: start: 2016
  21. QUETIAPINE. [Suspect]
     Active Substance: QUETIAPINE
     Indication: AGGRESSION
     Dosage: 100 MG, QD
     Route: 065
     Dates: start: 20170101
  22. DEXTROMETHORPHAN HYDROBROMIDE. [Suspect]
     Active Substance: DEXTROMETHORPHAN HYDROBROMIDE
     Indication: DELIRIUM
     Dosage: 24 MG, QD
     Dates: start: 20170101
  23. TRAZODONE [Concomitant]
     Active Substance: TRAZODONE HYDROCHLORIDE
     Indication: DELIRIUM
     Dosage: UNK
  24. TRAZODONE [Concomitant]
     Active Substance: TRAZODONE HYDROCHLORIDE
     Indication: AGGRESSION
  25. DONEPEZIL. [Concomitant]
     Active Substance: DONEPEZIL
     Indication: AGGRESSION
     Dosage: UNK
     Route: 065
  26. DIAZEPAM. [Concomitant]
     Active Substance: DIAZEPAM
     Indication: AGGRESSION
     Dosage: UNK
     Route: 065
  27. DIAZEPAM. [Concomitant]
     Active Substance: DIAZEPAM
     Indication: DEMENTIA WITH LEWY BODIES
  28. RISPERIDONE. [Concomitant]
     Active Substance: RISPERIDONE
     Indication: DEMENTIA WITH LEWY BODIES
     Dosage: UNK
  29. QUETIAPINE. [Suspect]
     Active Substance: QUETIAPINE
     Dosage: 150 MG, QD, AS HIGH AS TOLERATED BY THE PATIENT
     Route: 048
     Dates: start: 20160101
  30. SPIRIVA [Suspect]
     Active Substance: TIOTROPIUM BROMIDE MONOHYDRATE
     Indication: PNEUMONIA
     Dosage: UNK
     Route: 065
  31. RIVASTIGMINE. [Concomitant]
     Active Substance: RIVASTIGMINE
     Indication: DELIRIUM
  32. MIRTAZAPINE. [Concomitant]
     Active Substance: MIRTAZAPINE
     Indication: DEMENTIA WITH LEWY BODIES
  33. CARBAMAZEPINE. [Concomitant]
     Active Substance: CARBAMAZEPINE
     Indication: DEMENTIA WITH LEWY BODIES
  34. LORAZEPAM. [Suspect]
     Active Substance: LORAZEPAM
     Indication: DELIRIUM
  35. FLUPENTHIXOL [Suspect]
     Active Substance: FLUPENTIXOL
     Indication: DELIRIUM
     Dosage: UNK
     Route: 048
  36. FLUPENTHIXOL [Suspect]
     Active Substance: FLUPENTIXOL
     Indication: DEMENTIA WITH LEWY BODIES
  37. QUETIAPINE. [Suspect]
     Active Substance: QUETIAPINE
     Indication: AGITATION
     Dosage: DOSE : 1 (HIGH DOSE)
     Route: 048
     Dates: start: 20160101
  38. DRONABINOL. [Suspect]
     Active Substance: DRONABINOL
     Indication: AGGRESSION
     Dosage: 15 MG, QD
     Route: 065
     Dates: start: 20160101
  39. DEXTROMETHORPHAN HYDROBROMIDE. [Suspect]
     Active Substance: DEXTROMETHORPHAN HYDROBROMIDE
     Indication: AGITATION
     Dosage: 40 MG, QD
     Dates: start: 2017
  40. TRAZODONE [Concomitant]
     Active Substance: TRAZODONE HYDROCHLORIDE
     Indication: DEMENTIA WITH LEWY BODIES
  41. AMISULPRIDE [Concomitant]
     Active Substance: AMISULPRIDE
     Indication: DEMENTIA WITH LEWY BODIES
     Dosage: UNK
  42. ZUCLOPENTHIXOL [Concomitant]
     Active Substance: ZUCLOPENTHIXOL
     Indication: DEMENTIA WITH LEWY BODIES
     Dosage: UNK
  43. LORAZEPAM. [Suspect]
     Active Substance: LORAZEPAM
     Indication: DEMENTIA WITH LEWY BODIES
     Dosage: UNK, QD
     Route: 065
     Dates: start: 20160101
  44. PAROXETINE. [Suspect]
     Active Substance: PAROXETINE
     Indication: DELIRIUM
     Dosage: 10 MG, QD
     Route: 065
     Dates: start: 20170101
  45. FLUPENTHIXOL [Suspect]
     Active Substance: FLUPENTIXOL
     Indication: PARANOIA
  46. QUETIAPINE. [Suspect]
     Active Substance: QUETIAPINE
     Dosage: 100 MG, QD
     Route: 048
     Dates: start: 20170101
  47. DRONABINOL. [Suspect]
     Active Substance: DRONABINOL
     Indication: DELIRIUM
     Dosage: 2.5 MG, QD
     Route: 065
     Dates: start: 20160101
  48. DONEPEZIL. [Concomitant]
     Active Substance: DONEPEZIL
     Indication: DEMENTIA WITH LEWY BODIES
  49. FLUPENTHIXOL [Suspect]
     Active Substance: FLUPENTIXOL
     Indication: POOR QUALITY SLEEP
  50. QUETIAPINE. [Suspect]
     Active Substance: QUETIAPINE
     Indication: DELIRIUM
     Dosage: 150 MG, QD
     Route: 065
     Dates: start: 20160101, end: 2016
  51. AMPICILLIN/SULBACTAM [Suspect]
     Active Substance: AMPICILLIN SODIUM\SULBACTAM SODIUM
     Indication: PNEUMONIA
     Dosage: UNK
     Route: 065
  52. RIVASTIGMINE. [Concomitant]
     Active Substance: RIVASTIGMINE
     Indication: AGGRESSION
     Dosage: UNK, QD
     Route: 065
  53. FORMOTEROL [Suspect]
     Active Substance: FORMOTEROL
     Dosage: 20 MG, QD
     Route: 065
     Dates: start: 20160101
  54. LORAZEPAM. [Suspect]
     Active Substance: LORAZEPAM
     Indication: AGITATION
  55. LORAZEPAM. [Suspect]
     Active Substance: LORAZEPAM
     Indication: AGGRESSION
  56. QUETIAPINE. [Suspect]
     Active Substance: QUETIAPINE
     Indication: DEMENTIA WITH LEWY BODIES
     Dosage: 150 MG, UNK
     Route: 065
     Dates: start: 2017
  57. QUETIAPINE. [Suspect]
     Active Substance: QUETIAPINE
     Dosage: QD
     Route: 048
     Dates: start: 20160101
  58. DRONABINOL. [Suspect]
     Active Substance: DRONABINOL
     Dosage: UNK
     Route: 065
  59. TIOTROPIUM BROMIDE [Suspect]
     Active Substance: TIOTROPIUM BROMIDE
     Indication: PNEUMONIA
  60. CARBAMAZEPINE. [Concomitant]
     Active Substance: CARBAMAZEPINE
     Indication: AGGRESSION
     Dosage: UNK
     Route: 065

REACTIONS (13)
  - Paranoia [Fatal]
  - Sleep disorder [Fatal]
  - Rebound effect [Fatal]
  - Withdrawal syndrome [Fatal]
  - Off label use [Fatal]
  - Completed suicide [Fatal]
  - Condition aggravated [Fatal]
  - Agitation [Fatal]
  - Hangover [Fatal]
  - Delirium [Fatal]
  - Paradoxical drug reaction [Fatal]
  - Aggression [Fatal]
  - Fatigue [Fatal]

NARRATIVE: CASE EVENT DATE: 201601
